FAERS Safety Report 5015740-3 (Version None)
Quarter: 2006Q2

REPORT INFORMATION
  Report Type: 
  Country: None (occurrence: None)
  Receive Date: 20060419
  Receipt Date: 20060210
  Transmission Date: 20061013
  Serious: Yes (Hospitalization)
  Sender: FDA-Public Use
  Company Number: 2006-00531

PATIENT
  Age: 69 Year
  Sex: Male

DRUGS (2)
  1. FERRLECIT [Suspect]
     Indication: ANAEMIA
     Dosage: 125 MG, 1/WEEK X4, INTRAVENOUS
     Route: 042
     Dates: start: 20051201, end: 20051201
  2. FERRLECIT [Suspect]
     Indication: ANAEMIA
     Dosage: 125 MG, 1/WEEK X4, INTRAVENOUS
     Route: 042
     Dates: start: 20060120, end: 20060207

REACTIONS (2)
  - DYSPNOEA [None]
  - LETHARGY [None]
